FAERS Safety Report 9454897 (Version 1)
Quarter: 2013Q3

REPORT INFORMATION
  Report Type: Spontaneous
  Country: AU (occurrence: AU)
  Receive Date: 20130813
  Receipt Date: 20130813
  Transmission Date: 20140515
  Serious: Yes (Death)
  Sender: FDA-Public Use
  Company Number: AU-BRISTOL-MYERS SQUIBB COMPANY-19173509

PATIENT
  Age: 33 Year
  Sex: Female

DRUGS (1)
  1. YERVOY [Suspect]
     Dosage: LAST INFUSION DATE: 12JUL13

REACTIONS (2)
  - Death [Fatal]
  - Malaise [Unknown]
